FAERS Safety Report 23290024 (Version 1)
Quarter: 2023Q4

REPORT INFORMATION
  Report Type: Spontaneous
  Country: CN (occurrence: CN)
  Receive Date: 20231212
  Receipt Date: 20231212
  Transmission Date: 20240110
  Serious: Yes (Hospitalization, Other)
  Sender: FDA-Public Use
  Company Number: None

PATIENT
  Age: 14 Year
  Sex: Female

DRUGS (9)
  1. CYCLOPHOSPHAMIDE [Suspect]
     Active Substance: CYCLOPHOSPHAMIDE
     Indication: Soft tissue sarcoma
     Dosage: 3000 MG, ONE TIME IN ONE DAY, D1
     Route: 041
     Dates: start: 20230818, end: 20230818
  2. CYCLOPHOSPHAMIDE [Suspect]
     Active Substance: CYCLOPHOSPHAMIDE
     Indication: Lymphoma
  3. MESNA [Suspect]
     Active Substance: MESNA
     Indication: Soft tissue sarcoma
     Dosage: 0.6 G, ONE TIME IN ONE DAY, D1
     Route: 042
     Dates: start: 20230818, end: 20230818
  4. MESNA [Suspect]
     Active Substance: MESNA
     Indication: Lymphoma
  5. DACTINOMYCIN [Suspect]
     Active Substance: DACTINOMYCIN
     Indication: Soft tissue sarcoma
     Dosage: 2.1 MG, ONE TIME IN ONE DAY, D1
     Route: 041
     Dates: start: 20230818, end: 20230818
  6. DACTINOMYCIN [Suspect]
     Active Substance: DACTINOMYCIN
     Indication: Lymphoma
  7. VINCRISTINE SULFATE [Suspect]
     Active Substance: VINCRISTINE SULFATE
     Indication: Soft tissue sarcoma
     Dosage: 2 MG, ONE TIME IN ONE DAY, D1
     Route: 042
     Dates: start: 20230818, end: 20230818
  8. VINCRISTINE SULFATE [Suspect]
     Active Substance: VINCRISTINE SULFATE
     Indication: Lymphoma
     Dosage: 2 MG, ONE TIME IN ONE DAY, D8
     Route: 042
     Dates: start: 20230825, end: 20230825
  9. VINCRISTINE SULFATE [Suspect]
     Active Substance: VINCRISTINE SULFATE
     Dosage: 2 MG, ONE TIME IN ONE DAY, D8
     Route: 042
     Dates: start: 20230901, end: 20230901

REACTIONS (1)
  - Myelosuppression [Unknown]

NARRATIVE: CASE EVENT DATE: 20230825
